FAERS Safety Report 4974775-7 (Version None)
Quarter: 2006Q2

REPORT INFORMATION
  Report Type: 
  Country: None (occurrence: None)
  Receive Date: 20060417
  Receipt Date: 20060404
  Transmission Date: 20061013
  Serious: Yes (Disabling)
  Sender: FDA-Public Use
  Company Number: US-MERCK-0604USA00558

PATIENT
  Age: 55 Year
  Sex: Female

DRUGS (5)
  1. COZAAR [Suspect]
     Route: 048
  2. CORGARD [Concomitant]
     Route: 065
  3. ZOCOR [Suspect]
     Route: 048
  4. GLUCOPHAGE [Concomitant]
     Route: 065
  5. GLUCOPHAGE [Concomitant]
     Route: 065

REACTIONS (2)
  - BLOOD PRESSURE INCREASED [None]
  - SLEEP TERROR [None]
